FAERS Safety Report 19031736 (Version 1)
Quarter: 2021Q1

REPORT INFORMATION
  Report Type: Spontaneous
  Country: US (occurrence: US)
  Receive Date: 20210319
  Receipt Date: 20210319
  Transmission Date: 20210420
  Serious: Yes (Hospitalization)
  Sender: FDA-Public Use
  Company Number: None

PATIENT
  Sex: Female

DRUGS (1)
  1. XELJANZ XR [Suspect]
     Active Substance: TOFACITINIB CITRATE
     Indication: PSORIATIC ARTHROPATHY
     Route: 048
     Dates: start: 20200305

REACTIONS (11)
  - Gastric disorder [None]
  - Pain in extremity [None]
  - Pain [None]
  - Mouth ulceration [None]
  - Blister infected [None]
  - Impaired healing [None]
  - Dehydration [None]
  - Bacterial food poisoning [None]
  - Pruritus [None]
  - Laboratory test abnormal [None]
  - Vomiting [None]
